FAERS Safety Report 10099983 (Version 1)
Quarter: 2014Q2

REPORT INFORMATION
  Report Type: Spontaneous
  Country: US (occurrence: US)
  Receive Date: 20140423
  Receipt Date: 20140423
  Transmission Date: 20141212
  Serious: No
  Sender: FDA-Public Use
  Company Number: US-MYLANLABS-2014S1002256

PATIENT
  Age: 42 Year
  Sex: Female

DRUGS (1)
  1. RIZATRIPTAN BENZOATE ORALLY DISINTEGRATING TABLETS [Suspect]
     Dosage: MAY REPEAT IN 2 HOURS AS DIRECTED
     Route: 048
     Dates: start: 201307, end: 201401

REACTIONS (2)
  - Drug administration error [Recovered/Resolved]
  - No adverse event [Recovered/Resolved]
